FAERS Safety Report 14775270 (Version 3)
Quarter: 2018Q3

REPORT INFORMATION
  Report Type: Spontaneous
  Country: BE (occurrence: BE)
  Receive Date: 20180418
  Receipt Date: 20180727
  Transmission Date: 20181010
  Serious: Yes (Hospitalization, Other)
  Sender: FDA-Public Use
  Company Number: PHHY2016BE186656

PATIENT
  Age: 75 Year
  Sex: Female
  Weight: 63.3 kg

DRUGS (25)
  1. STEOVIT D3 [Concomitant]
     Active Substance: CALCIUM CARBONATE\CHOLECALCIFEROL
     Indication: PRODUCT USED FOR UNKNOWN INDICATION
     Route: 065
  2. ASAFLOW [Concomitant]
     Active Substance: ASPIRIN
     Indication: PRODUCT USED FOR UNKNOWN INDICATION
     Route: 065
  3. SIMVASTATIN. [Concomitant]
     Active Substance: SIMVASTATIN
     Indication: PRODUCT USED FOR UNKNOWN INDICATION
     Dosage: UNK
     Route: 065
  4. ASAFLOW [Concomitant]
     Active Substance: ASPIRIN
     Route: 065
  5. AVASTIN [Suspect]
     Active Substance: BEVACIZUMAB
     Dosage: 915 MG, Q3W
     Route: 042
     Dates: start: 20160902
  6. CARBOPLATIN. [Suspect]
     Active Substance: CARBOPLATIN
     Indication: OVARIAN CANCER
     Dosage: 1 DF, QW (2AUC)
     Route: 042
     Dates: start: 20160225
  7. AVASTIN [Suspect]
     Active Substance: BEVACIZUMAB
     Indication: OVARIAN CANCER
     Dosage: 963 MG, Q3W
     Route: 042
     Dates: start: 20160225
  8. AVASTIN [Suspect]
     Active Substance: BEVACIZUMAB
     Dosage: 990 MG, Q3W
     Route: 042
     Dates: start: 20160308
  9. SIPRALEXA [Concomitant]
     Active Substance: ESCITALOPRAM OXALATE
     Indication: PRODUCT USED FOR UNKNOWN INDICATION
     Route: 065
  10. EFEXOR [Concomitant]
     Active Substance: VENLAFAXINE HYDROCHLORIDE
     Indication: PRODUCT USED FOR UNKNOWN INDICATION
     Route: 065
  11. PACLITAXEL. [Suspect]
     Active Substance: PACLITAXEL
     Indication: OVARIAN CANCER
     Dosage: 60 MG/M2, QW
     Route: 042
     Dates: start: 20160225
  12. AVASTIN [Suspect]
     Active Substance: BEVACIZUMAB
     Dosage: 975 MG, Q3W
     Route: 042
     Dates: start: 20160317
  13. AVASTIN [Suspect]
     Active Substance: BEVACIZUMAB
     Dosage: 990 MG, Q3W
     Route: 042
     Dates: start: 20160426
  14. AVASTIN [Suspect]
     Active Substance: BEVACIZUMAB
     Dosage: 975 MG, Q3W
     Route: 042
     Dates: start: 20160520
  15. AMOCLANE [Concomitant]
     Indication: INFECTION
     Dosage: UNK
     Route: 065
  16. TRADONAL [Concomitant]
     Active Substance: TRAMADOL HYDROCHLORIDE
     Indication: PRODUCT USED FOR UNKNOWN INDICATION
     Route: 065
  17. FRAXODI [Concomitant]
     Active Substance: NADROPARIN CALCIUM
     Route: 065
  18. CARBOPLATIN. [Suspect]
     Active Substance: CARBOPLATIN
     Dosage: 2 AUC
     Route: 042
     Dates: start: 20160225
  19. TRADONAL [Concomitant]
     Active Substance: TRAMADOL HYDROCHLORIDE
     Route: 065
  20. SIPRALEXA [Concomitant]
     Active Substance: ESCITALOPRAM OXALATE
  21. SIMVASTATIN. [Concomitant]
     Active Substance: SIMVASTATIN
     Dosage: UNK
  22. PARACETAMOL [Concomitant]
     Active Substance: ACETAMINOPHEN
     Indication: PRODUCT USED FOR UNKNOWN INDICATION
     Route: 065
  23. PARACETAMOL [Concomitant]
     Active Substance: ACETAMINOPHEN
  24. FRAXODI [Concomitant]
     Active Substance: NADROPARIN CALCIUM
     Indication: PRODUCT USED FOR UNKNOWN INDICATION
     Route: 065
  25. EFEXOR [Concomitant]
     Active Substance: VENLAFAXINE HYDROCHLORIDE

REACTIONS (6)
  - Spinal compression fracture [Not Recovered/Not Resolved]
  - Proteinuria [Recovered/Resolved]
  - Hypertension [Not Recovered/Not Resolved]
  - Dysgeusia [Not Recovered/Not Resolved]
  - Epilepsy [Recovered/Resolved]
  - Wound dehiscence [Not Recovered/Not Resolved]

NARRATIVE: CASE EVENT DATE: 20160325
